FAERS Safety Report 16304877 (Version 1)
Quarter: 2019Q2

REPORT INFORMATION
  Report Type: Spontaneous
  Country: US (occurrence: US)
  Receive Date: 20190407
  Receipt Date: 20190407
  Transmission Date: 20190711
  Serious: No
  Sender: FDA-Public Use
  Company Number: None

PATIENT
  Age: 55 Year
  Sex: Female

DRUGS (2)
  1. PROTONIX [Concomitant]
     Active Substance: PANTOPRAZOLE SODIUM
  2. REPATHA [Suspect]
     Active Substance: EVOLOCUMAB
     Dosage: ?          OTHER ?DATES OF USE: 04/11/2019
     Route: 058

REACTIONS (2)
  - Blood cholesterol increased [None]
  - Therapy cessation [None]

NARRATIVE: CASE EVENT DATE: 20190407
